FAERS Safety Report 4299485-3 (Version None)
Quarter: 2004Q1

REPORT INFORMATION
  Report Type: 
  Country: None (occurrence: None)
  Receive Date: 20040217
  Receipt Date: 20040130
  Transmission Date: 20041129
  Serious: Yes (Other)
  Sender: FDA-Public Use
  Company Number: 2004197430US

PATIENT
  Sex: Female

DRUGS (2)
  1. ROGAINE [Suspect]
     Indication: ALOPECIA
     Dosage: 1 ML, BID, TOPICAL
     Route: 061
  2. ESTROGENIC SUBSTANCE [Suspect]

REACTIONS (2)
  - ELECTROCARDIOGRAM CHANGE [None]
  - STENT PLACEMENT [None]
